FAERS Safety Report 7307342-0 (Version None)
Quarter: 2011Q1

REPORT INFORMATION
  Report Type: 
  Country: None (occurrence: None)
  Receive Date: 20110223
  Receipt Date: 20110221
  Transmission Date: 20110831
  Serious: Yes (Other)
  Sender: FDA-Public Use
  Company Number: SE-PFIZER INC-2011034988

PATIENT
  Age: 63 Year
  Sex: Female

DRUGS (3)
  1. DIAZEPAM [Concomitant]
     Dosage: UNK
  2. PREDNISOLONE [Suspect]
     Indication: POLYMYALGIA RHEUMATICA
     Dosage: 25 MG, UNK
     Dates: start: 20090101
  3. PREDNISOLONE [Suspect]
     Dosage: 5 MG, DAILY

REACTIONS (2)
  - PULMONARY THROMBOSIS [None]
  - JOINT SPRAIN [None]
